FAERS Safety Report 19440385 (Version 2)
Quarter: 2021Q2

REPORT INFORMATION
  Report Type: Spontaneous
  Country: GB (occurrence: GB)
  Receive Date: 20210621
  Receipt Date: 20210624
  Transmission Date: 20210717
  Serious: Yes (Other)
  Sender: FDA-Public Use
  Company Number: GB-BEH-2021132879

PATIENT
  Age: 51 Year
  Sex: Female

DRUGS (1)
  1. HUMAN IMMUNOGLOBULIN (INN) [Suspect]
     Active Substance: HUMAN IMMUNOGLOBULIN G
     Indication: PRODUCT USED FOR UNKNOWN INDICATION
     Route: 065

REACTIONS (6)
  - Splinter haemorrhages [Not Recovered/Not Resolved]
  - Haemangioma of skin [Recovered/Resolved]
  - Blood bilirubin increased [Recovered/Resolved]
  - Haemorrhage [Not Recovered/Not Resolved]
  - Haemolysis [Recovered/Resolved]
  - Oral blood blister [Recovered/Resolved]

NARRATIVE: CASE EVENT DATE: 20210523
